FAERS Safety Report 16927918 (Version 1)
Quarter: 2019Q4

REPORT INFORMATION
  Report Type: Report from Study
  Country: CO (occurrence: CO)
  Receive Date: 20191017
  Receipt Date: 20191017
  Transmission Date: 20200122
  Serious: Yes (Hospitalization, Other)
  Sender: FDA-Public Use
  Company Number: CO-UCBSA-2019042901

PATIENT
  Age: 69 Year
  Sex: Male

DRUGS (1)
  1. ROTIGOTINE [Suspect]
     Active Substance: ROTIGOTINE
     Indication: PARKINSON^S DISEASE
     Dosage: 16 MILLIGRAM, ONCE DAILY (QD)
     Route: 062
     Dates: start: 20140209

REACTIONS (1)
  - Cerebral thrombosis [Recovered/Resolved]

NARRATIVE: CASE EVENT DATE: 20190923
